FAERS Safety Report 4288808-7 (Version None)
Quarter: 2004Q1

REPORT INFORMATION
  Report Type: 
  Country: None (occurrence: None)
  Receive Date: 20040205
  Receipt Date: 20040130
  Transmission Date: 20041129
  Serious: Yes (Other)
  Sender: FDA-Public Use
  Company Number: 2004196753JP

PATIENT
  Age: 74 Year
  Sex: Male

DRUGS (4)
  1. AZULFIDINE [Suspect]
     Indication: ARTHRALGIA
     Dosage: 1 G/DAY, ORAL
     Route: 048
     Dates: start: 20031101, end: 20040107
  2. NEUROTROPIN (ORGAN LYSATE, STANDARDIZED) [Concomitant]
  3. BLOPRESS (CANDESARTAN CILEXETIL) [Concomitant]
  4. MEILAX (ETHYL LOFLAZEPATE) [Concomitant]

REACTIONS (4)
  - HYPOTHYROIDISM [None]
  - PYREXIA [None]
  - TACHYCARDIA [None]
  - WEIGHT DECREASED [None]
